FAERS Safety Report 25853305 (Version 1)
Quarter: 2025Q3

REPORT INFORMATION
  Report Type: Report from Study
  Country: US (occurrence: US)
  Receive Date: 20250926
  Receipt Date: 20250926
  Transmission Date: 20251020
  Serious: Yes (Other)
  Sender: TAIHO ONCOLOGY INC
  Company Number: US-Taiho Oncology Inc-2025-001257

PATIENT
  Age: 77 Year
  Sex: Female

DRUGS (15)
  1. INQOVI [Suspect]
     Active Substance: CEDAZURIDINE\DECITABINE
     Indication: Myelodysplastic syndrome
     Dosage: 135MG (DECITABINE 35 MG + CEDAZURIDINE 100 MG) ON DAYS 1-3 OF EACH 28 DAY CYCLE?CYCLE UNKNOWN
     Route: 048
     Dates: start: 20241107
  2. ACETAMINOPHE [Concomitant]
     Indication: Product used for unknown indication
  3. ACYCLOVIR [Concomitant]
     Active Substance: ACYCLOVIR
     Indication: Product used for unknown indication
  4. ALBUTEROL SULFATE [Concomitant]
     Active Substance: ALBUTEROL SULFATE
     Indication: Product used for unknown indication
  5. ALLOPURINOL [Concomitant]
     Active Substance: ALLOPURINOL
     Indication: Product used for unknown indication
  6. CALCIUM\VITAMIN D [Concomitant]
     Active Substance: CALCIUM\VITAMIN D
     Indication: Product used for unknown indication
  7. HYDROXYUREA [Concomitant]
     Active Substance: HYDROXYUREA
     Indication: Product used for unknown indication
  8. MAGNESIUM [Concomitant]
     Active Substance: MAGNESIUM
     Indication: Product used for unknown indication
  9. MULTIVITAMIN ADULT [Concomitant]
     Indication: Product used for unknown indication
  10. VENCLEXTA [Concomitant]
     Active Substance: VENETOCLAX
     Indication: Product used for unknown indication
  11. VITAMIN D [Concomitant]
     Active Substance: VITAMIN D NOS
     Indication: Product used for unknown indication
  12. VORICONAZOLE [Concomitant]
     Active Substance: VORICONAZOLE
     Indication: Product used for unknown indication
  13. ZINC [Concomitant]
     Active Substance: ZINC
     Indication: Product used for unknown indication
  14. ERGOCALCIFER [Concomitant]
     Indication: Product used for unknown indication
  15. ONDANSETRON [Concomitant]
     Active Substance: ONDANSETRON
     Indication: Product used for unknown indication

REACTIONS (15)
  - Anaemia macrocytic [Unknown]
  - Hypotension [Unknown]
  - Tremor [Unknown]
  - Fatigue [Unknown]
  - Thrombocytosis [Unknown]
  - Inappropriate schedule of product administration [Unknown]
  - Lethargy [Unknown]
  - Nausea [Unknown]
  - Decreased appetite [Unknown]
  - Feeling cold [Unknown]
  - Anxiety [Unknown]
  - Insomnia [Unknown]
  - Confusional state [Unknown]
  - Dyspnoea [Unknown]
  - Skin fragility [Unknown]

NARRATIVE: CASE EVENT DATE: 20250717
